FAERS Safety Report 8804651 (Version 1)
Quarter: 2012Q4

REPORT INFORMATION
  Report Type: 
  Country: FR (occurrence: FR)
  Receive Date: 20120924
  Receipt Date: 20120924
  Transmission Date: 20130627
  Serious: Yes (Hospitalization)
  Sender: FDA-Public Use
  Company Number: FR-BRISTOL-MYERS SQUIBB COMPANY-16969438

PATIENT
  Age: 35 Year
  Sex: Male

DRUGS (5)
  1. ABILIFY [Suspect]
     Dates: start: 20120629, end: 20120803
  2. TERCIAN [Suspect]
     Route: 048
     Dates: start: 20120705
  3. SOLUPRED [Suspect]
     Dates: start: 20120710
  4. NOCTAMIDE [Suspect]
     Route: 048
     Dates: start: 20120728
  5. RISPERIDONE [Suspect]
     Dates: start: 20120801

REACTIONS (2)
  - Anaemia haemolytic autoimmune [Unknown]
  - Thrombocytopenia [Unknown]
